FAERS Safety Report 25606803 (Version 2)
Quarter: 2025Q3

REPORT INFORMATION
  Report Type: Report from Study
  Country: US (occurrence: US)
  Receive Date: 20250725
  Receipt Date: 20250729
  Transmission Date: 20251021
  Serious: Yes (Other)
  Sender: ABBVIE
  Company Number: US-ABBVIE-6384381

PATIENT
  Age: 75 Year
  Sex: Female

DRUGS (2)
  1. RINVOQ [Suspect]
     Active Substance: UPADACITINIB
     Indication: Rheumatoid arthritis
     Dosage: FORM STRENGTJH:15 MG?END DATE 2025?HELD RINVOQ THERAPY FOR ABOUT A MONTH
     Route: 048
     Dates: start: 202503
  2. RINVOQ [Suspect]
     Active Substance: UPADACITINIB
     Indication: Rheumatoid arthritis
     Dosage: FORM STRENGTJH:15 MG
     Route: 048
     Dates: start: 2025

REACTIONS (8)
  - Oral surgery [Unknown]
  - Peripheral swelling [Recovering/Resolving]
  - Movement disorder [Recovering/Resolving]
  - Pain [Unknown]
  - Joint injury [Recovering/Resolving]
  - Musculoskeletal disorder [Recovering/Resolving]
  - Finger deformity [Recovering/Resolving]
  - Musculoskeletal stiffness [Unknown]

NARRATIVE: CASE EVENT DATE: 20250101
